FAERS Safety Report 17430171 (Version 3)
Quarter: 2020Q3

REPORT INFORMATION
  Report Type: Report from Study
  Country: CA (occurrence: CA)
  Receive Date: 20200213
  Receipt Date: 20200724
  Transmission Date: 20201102
  Serious: Yes (Other)
  Sender: FDA-Public Use
  Company Number: CA-AMGEN-CANSL2020022515

PATIENT
  Age: 57 Year
  Sex: Female

DRUGS (1)
  1. PROLIA [Suspect]
     Active Substance: DENOSUMAB
     Indication: OSTEOPOROSIS POSTMENOPAUSAL
     Dosage: 60 MILLIGRAM PER MILLILITRE
     Route: 065

REACTIONS (2)
  - Gingival recession [Unknown]
  - Dental care [Unknown]

NARRATIVE: CASE EVENT DATE: 2019
